FAERS Safety Report 4396645-8 (Version None)
Quarter: 2004Q3

REPORT INFORMATION
  Report Type: 
  Country: None (occurrence: None)
  Receive Date: 20040708
  Receipt Date: 20040701
  Transmission Date: 20050211
  Serious: Yes (Death, Hospitalization)
  Sender: FDA-Public Use
  Company Number: STA-AE-04-MTX-288

PATIENT
  Age: 60 Year
  Sex: Female

DRUGS (8)
  1. RHEUMATREX [Suspect]
     Indication: RHEUMATOID ARTHRITIS
     Dosage: 4 MG 1X PER 1WK, ORAL
     Route: 048
     Dates: start: 20020514, end: 20040206
  2. PREDNISOLONE [Concomitant]
  3. AMLODIPINE BESYLATE [Concomitant]
  4. BASEN            (VOGLIBOSE) [Concomitant]
  5. NU-LOTAN           (LOSARTAN POTASSIUM) [Concomitant]
  6. EUGLOCON           (GLIBENCLAMIDE) [Concomitant]
  7. INDOMETHACIN [Concomitant]
  8. FOSAMAX [Concomitant]

REACTIONS (1)
  - PNEUMONIA [None]
